FAERS Safety Report 7907027 (Version 3)
Quarter: 2013Q4

REPORT INFORMATION
  Report Type: Spontaneous
  Country: US (occurrence: US)
  Receive Date: 20110420
  Receipt Date: 20131219
  Transmission Date: 20140711
  Serious: Yes (Hospitalization)
  Sender: FDA-Public Use
  Company Number: US-BAYER-2010-001609

PATIENT
  Age: 28 Year
  Sex: Female
  Weight: 49.89 kg

DRUGS (3)
  1. YASMIN [Suspect]
     Indication: ACNE
     Dosage: UNK
     Dates: start: 2003
  2. YAZ [Suspect]
     Indication: ACNE
     Dosage: UNK
     Dates: start: 2003
  3. ADVIL [Concomitant]
     Indication: HEADACHE

REACTIONS (5)
  - Cholecystectomy [None]
  - Nausea [None]
  - Abdominal pain [None]
  - Vomiting [None]
  - Biliary dyskinesia [None]
